FAERS Safety Report 6264458-8 (Version None)
Quarter: 2009Q3

REPORT INFORMATION
  Report Type: 
  Country: None (occurrence: None)
  Receive Date: 20090708
  Receipt Date: 20090708
  Transmission Date: 20100115
  Serious: Yes (Death)
  Sender: FDA-Public Use
  Company Number: None

PATIENT
  Sex: Male

DRUGS (2)
  1. METHADONE HCL [Suspect]
  2. ROXANAL [Concomitant]

REACTIONS (1)
  - MEDICATION ERROR [None]
